FAERS Safety Report 5484627-4 (Version None)
Quarter: 2007Q4

REPORT INFORMATION
  Report Type: 
  Country: None (occurrence: None)
  Receive Date: 20071012
  Receipt Date: 20071004
  Transmission Date: 20080405
  Serious: Yes (Hospitalization, Other)
  Sender: FDA-Public Use
  Company Number: US-PFIZER INC-2006016756

PATIENT
  Sex: Female
  Weight: 108.9 kg

DRUGS (6)
  1. CELEBREX [Suspect]
     Indication: PAIN
     Route: 048
  2. CELEBREX [Suspect]
     Indication: RHEUMATOID ARTHRITIS
  3. BEXTRA [Suspect]
     Indication: PAIN
     Route: 048
  4. BEXTRA [Suspect]
     Indication: RHEUMATOID ARTHRITIS
  5. VIOXX [Suspect]
     Indication: PAIN
     Route: 048
  6. VIOXX [Suspect]
     Indication: RHEUMATOID ARTHRITIS

REACTIONS (3)
  - CARDIAC DISORDER [None]
  - CEREBROVASCULAR ACCIDENT [None]
  - THROMBOSIS [None]
